FAERS Safety Report 8540042-8 (Version None)
Quarter: 2012Q3

REPORT INFORMATION
  Report Type: 
  Country: None (occurrence: None)
  Receive Date: 20120726
  Receipt Date: 20120724
  Transmission Date: 20120928
  Serious: Yes (Hospitalization)
  Sender: FDA-Public Use
  Company Number: US-ROCHE-1082386

PATIENT
  Sex: Female
  Weight: 61.29 kg

DRUGS (4)
  1. OMALIZUMAB [Suspect]
     Indication: ASTHMA
     Route: 058
     Dates: start: 20120401, end: 20120401
  2. SYMBICORT [Concomitant]
     Indication: ASTHMA
     Route: 055
  3. XOPENEX HFA [Concomitant]
     Indication: ASTHMA
     Route: 055
  4. PULMICORT NEBULIZER [Concomitant]
     Indication: ASTHMA
     Route: 055

REACTIONS (1)
  - LUNG INFECTION [None]
